FAERS Safety Report 17245071 (Version 2)
Quarter: 2020Q1

REPORT INFORMATION
  Report Type: Spontaneous
  Country: US (occurrence: US)
  Receive Date: 20200108
  Receipt Date: 20200131
  Transmission Date: 20200409
  Serious: No
  Sender: FDA-Public Use
  Company Number: US-ASTRAZENECA-2019SF81516

PATIENT
  Age: 48 Year
  Sex: Male
  Weight: 138.3 kg

DRUGS (1)
  1. BYDUREON [Suspect]
     Active Substance: EXENATIDE
     Indication: GLUCOSE TOLERANCE IMPAIRED
     Route: 058
     Dates: start: 2019, end: 201911

REACTIONS (5)
  - Pain [Not Recovered/Not Resolved]
  - Intentional product misuse [Unknown]
  - Skin ulcer [Not Recovered/Not Resolved]
  - Accident [Unknown]
  - Acne [Unknown]

NARRATIVE: CASE EVENT DATE: 2019
